FAERS Safety Report 8296105-8 (Version None)
Quarter: 2012Q2

REPORT INFORMATION
  Report Type: 
  Country: None (occurrence: None)
  Receive Date: 20120418
  Receipt Date: 20120412
  Transmission Date: 20120825
  Serious: Yes (Death, Hospitalization)
  Sender: FDA-Public Use
  Company Number: US-GLAXOSMITHKLINE-A0973396A

PATIENT
  Age: 44 Year
  Sex: Male

DRUGS (21)
  1. DOXAZOSIN MESYLATE [Concomitant]
  2. LOSARTAN POTASSIUM [Concomitant]
  3. ZEMPLAR [Concomitant]
  4. EPIVIR-HBV [Suspect]
     Indication: PRODUCT USED FOR UNKNOWN INDICATION
     Dosage: 100MG PER DAY
     Route: 048
     Dates: start: 20120201
  5. FENTANYL [Concomitant]
  6. CLONIDINE [Concomitant]
  7. PERCOCET [Concomitant]
  8. MOXIFLOXACIN [Concomitant]
  9. SENSIPAR [Concomitant]
  10. TENOFOVIR [Concomitant]
  11. SACCHAROMYCES BOULARDII [Concomitant]
  12. HYDRALAZINE HCL [Concomitant]
  13. VITAPLEX [Concomitant]
  14. BENADRYL [Concomitant]
  15. VENOFER [Concomitant]
  16. NORVASC [Concomitant]
  17. LABETALOL HCL [Concomitant]
  18. RALTEGRAVIR [Concomitant]
  19. MEPRON [Suspect]
     Indication: PRODUCT USED FOR UNKNOWN INDICATION
     Dosage: 750MG TWICE PER DAY
     Route: 048
     Dates: start: 20120301
  20. HYDROMORPHONE HCL [Concomitant]
  21. DARBEPOETIN ALFA [Concomitant]

REACTIONS (1)
  - CARDIAC FAILURE [None]
